FAERS Safety Report 15678668 (Version 1)
Quarter: 2018Q4

REPORT INFORMATION
  Report Type: Spontaneous
  Country: US (occurrence: US)
  Receive Date: 20181130
  Receipt Date: 20181130
  Transmission Date: 20190205
  Serious: Yes (Other)
  Sender: FDA-Public Use
  Company Number: None

PATIENT
  Age: 65 Year
  Sex: Male
  Weight: 90 kg

DRUGS (1)
  1. AIMOVIG [Suspect]
     Active Substance: ERENUMAB-AOOE
     Indication: MIGRAINE
     Dosage: ?          OTHER STRENGTH:DO NOT KNOW;QUANTITY:1 INJECTION(S);OTHER FREQUENCY:ONE SHOT MONTHLY;?
     Route: 058
     Dates: start: 20180628, end: 20180628

REACTIONS (2)
  - Vomiting [None]
  - Migraine [None]

NARRATIVE: CASE EVENT DATE: 20180629
